FAERS Safety Report 23578834 (Version 2)
Quarter: 2025Q3

REPORT INFORMATION
  Report Type: Spontaneous
  Country: GB (occurrence: GB)
  Receive Date: 20240229
  Receipt Date: 20250715
  Transmission Date: 20251021
  Serious: Yes (Other)
  Sender: GLAXOSMITHKLINE
  Company Number: None

PATIENT
  Age: 66 Year
  Sex: Female
  Weight: 78 kg

DRUGS (5)
  1. NIRAPARIB [Suspect]
     Active Substance: NIRAPARIB
     Indication: Fallopian tube cancer stage III
     Dosage: 300 MG, QD (NIRAPARIB COMMENCED 20/06/22 AT 300MG OD. DOSE REDUCED ON DAY 22 OF CYCLE 1 TO 200MG OD. REMAINED ON THIS DOSE UNTIL MARCH 2025)
     Route: 065
  2. NIRAPARIB [Suspect]
     Active Substance: NIRAPARIB
     Dosage: 200 MG, QD(NIRAPARIB COMMENCED 20/06/22 AT 300MG OD. DOSE REDUCED ON DAY 22 OF CYCLE 1 TO 200MG OD. REMAINED ON THIS DOSE UNTIL MARCH 2025)
     Route: 065
  3. LEVOTHYROXINE [Concomitant]
     Active Substance: LEVOTHYROXINE
     Indication: Product used for unknown indication
     Dosage: 50 UG, QD
     Route: 065
  4. AMLODIPINE [Concomitant]
     Active Substance: AMLODIPINE BESYLATE
     Indication: Product used for unknown indication
     Dosage: 5 MG, QD
     Route: 065
  5. ATORVASTATIN [Concomitant]
     Active Substance: ATORVASTATIN
     Indication: Product used for unknown indication
     Dosage: 20 MG, QD
     Route: 065

REACTIONS (5)
  - Lymphoedema [Not Recovered/Not Resolved]
  - Erythema [Recovering/Resolving]
  - Breast swelling [Recovering/Resolving]
  - Medication error [Unknown]
  - Skin hypertrophy [Unknown]

NARRATIVE: CASE EVENT DATE: 20230621
